FAERS Safety Report 12209072 (Version 1)
Quarter: 2016Q1

REPORT INFORMATION
  Report Type: Spontaneous
  Country: FR (occurrence: FR)
  Receive Date: 20160324
  Receipt Date: 20160324
  Transmission Date: 20160526
  Serious: Yes (Hospitalization)
  Sender: FDA-Public Use
  Company Number: FR-PFIZER INC-2016165867

PATIENT
  Age: 55 Year
  Sex: Female

DRUGS (18)
  1. PLAQUENIL [Concomitant]
     Active Substance: HYDROXYCHLOROQUINE SULFATE
  2. CALCIPARINE [Concomitant]
     Active Substance: HEPARIN CALCIUM
  3. DEPAMIDE [Concomitant]
     Active Substance: VALPROMIDE
  4. KARDEGIC [Concomitant]
     Active Substance: ASPIRIN LYSINE
  5. OXYNORMORO [Concomitant]
     Active Substance: OXYCODONE
  6. ZYVOXID [Suspect]
     Active Substance: LINEZOLID
     Indication: INFLAMMATION
     Dosage: 600 MG, 2X/DAY
     Route: 048
     Dates: start: 20160111, end: 20160202
  7. ONDANSETRON [Concomitant]
     Active Substance: ONDANSETRON
  8. ZYVOXID [Suspect]
     Active Substance: LINEZOLID
     Indication: INFECTED SKIN ULCER
  9. PIPERACILLIN/TAZOBACTAM [Suspect]
     Active Substance: PIPERACILLIN SODIUM\TAZOBACTAM SODIUM
     Indication: INFLAMMATION
     Dosage: UNK
     Route: 042
     Dates: start: 20160122, end: 20160127
  10. OXYCONTIN [Concomitant]
     Active Substance: OXYCODONE HYDROCHLORIDE
  11. PERFALGAN [Concomitant]
     Active Substance: ACETAMINOPHEN
  12. PIPERACILLIN/TAZOBACTAM [Suspect]
     Active Substance: PIPERACILLIN SODIUM\TAZOBACTAM SODIUM
     Indication: INFECTED SKIN ULCER
  13. INEXIUM /01479302/ [Concomitant]
     Active Substance: ESOMEPRAZOLE MAGNESIUM
  14. CEFTRIAXONE RATIOPHARM [Suspect]
     Active Substance: CEFTRIAXONE
     Indication: INFLAMMATION
     Dosage: UNK
     Route: 042
     Dates: start: 20160127, end: 20160131
  15. CEFTRIAXONE RATIOPHARM [Suspect]
     Active Substance: CEFTRIAXONE
     Indication: INFECTED SKIN ULCER
  16. LYRICA [Concomitant]
     Active Substance: PREGABALIN
  17. LAROXYL [Concomitant]
     Active Substance: AMITRIPTYLINE
  18. SERESTA [Concomitant]
     Active Substance: OXAZEPAM

REACTIONS (2)
  - Clostridium difficile colitis [Recovered/Resolved]
  - Acute kidney injury [Recovered/Resolved]

NARRATIVE: CASE EVENT DATE: 20160209
